FAERS Safety Report 5169648-3 (Version None)
Quarter: 2006Q4

REPORT INFORMATION
  Report Type: 
  Country: None (occurrence: None)
  Receive Date: 20060918
  Receipt Date: 20060620
  Transmission Date: 20070319
  Serious: Yes (Hospitalization)
  Sender: FDA-Public Use
  Company Number: US-JNJFOC-20060604818

PATIENT
  Age: 35 Year
  Sex: Female
  Weight: 79.3795 kg

DRUGS (3)
  1. ORTHO EVRA [Suspect]
     Indication: CONTRACEPTION
     Dosage: 1 DOSE(S), 3 IN  4 WEEK
     Dates: start: 20030101, end: 20031219
  2. XANAX [Concomitant]
  3. ANTIDEPRESSANT (ANTIDEPRESSANT) [Concomitant]

REACTIONS (2)
  - ANAEMIA [None]
  - THROMBOSIS [None]
